FAERS Safety Report 10179682 (Version 1)
Quarter: 2014Q2

REPORT INFORMATION
  Report Type: Spontaneous
  Country: US (occurrence: None)
  Receive Date: 20140425
  Receipt Date: 20140425
  Transmission Date: 20141212
  Serious: No
  Sender: FDA-Public Use
  Company Number: AP356-00467-SPO-US

PATIENT
  Age: 44 Year
  Sex: Female
  Weight: 98 kg

DRUGS (1)
  1. BELVIQ (LORCASERIN HYDROCHLORIDE) [Suspect]
     Indication: WEIGHT DECREASED
     Route: 048
     Dates: start: 20140219, end: 20140219

REACTIONS (8)
  - Feeling cold [None]
  - Feeling hot [None]
  - Cold sweat [None]
  - Nausea [None]
  - Dizziness [None]
  - Headache [None]
  - Somnolence [None]
  - Fatigue [None]
